FAERS Safety Report 5672651-8 (Version None)
Quarter: 2008Q1

REPORT INFORMATION
  Report Type: 
  Country: None (occurrence: None)
  Receive Date: 20080317
  Receipt Date: 20080303
  Transmission Date: 20080703
  Serious: Yes (Hospitalization, Other)
  Sender: FDA-Public Use
  Company Number: 024860

PATIENT
  Age: 24 Year
  Sex: Female

DRUGS (3)
  1. VERAPAMIL HCL [Suspect]
     Indication: VASOSPASM
     Dosage: 15 MG, INTRAVENOUS; 25 MG, INTRAVENOUS
     Route: 042
  2. NIMODIPINE [Concomitant]
  3. PHENYTOIN [Concomitant]

REACTIONS (5)
  - APHASIA [None]
  - GAZE PALSY [None]
  - GRAND MAL CONVULSION [None]
  - HEMIPARESIS [None]
  - PARTIAL SEIZURES [None]
